FAERS Safety Report 8225086 (Version 2)
Quarter: 2013Q2

REPORT INFORMATION
  Report Type: Spontaneous
  Country: VE (occurrence: VE)
  Receive Date: 20111103
  Receipt Date: 20130416
  Transmission Date: 20140414
  Serious: Yes (Hospitalization)
  Sender: FDA-Public Use
  Company Number: PHHY2011VE95988

PATIENT
  Age: 53 Year
  Sex: Female

DRUGS (7)
  1. ACLASTA [Suspect]
     Indication: OSTEOPOROSIS
     Dosage: 5 MG/100 ML ONCE A YEAR
     Route: 042
     Dates: start: 20080701
  2. ACLASTA [Suspect]
     Dosage: 5 MG/100 ML ONCE A YEAR
     Route: 042
     Dates: start: 200908
  3. ACLASTA [Suspect]
     Dosage: 5 MG/100 ML ONCE A YEAR
     Route: 042
     Dates: start: 201008
  4. ACLASTA [Suspect]
     Dosage: 5 MG/100 ML ONCE A YEAR
     Route: 042
     Dates: start: 201108
  5. CALCIUM [Concomitant]
     Dosage: UNK
     Route: 048
  6. VITAMIN D [Concomitant]
     Dosage: ONE PILL ONCE IN A WHILE
     Route: 048
  7. VITAMIN E [Concomitant]
     Dosage: ONE PILL ONCE IN A WHILE
     Route: 048

REACTIONS (3)
  - Fall [Recovered/Resolved]
  - Femur fracture [Recovered/Resolved]
  - Hand fracture [Recovered/Resolved]
